FAERS Safety Report 19832515 (Version 1)
Quarter: 2021Q3

REPORT INFORMATION
  Report Type: Spontaneous
  Country: GB (occurrence: GB)
  Receive Date: 20210914
  Receipt Date: 20210914
  Transmission Date: 20211014
  Serious: Yes (Hospitalization)
  Sender: FDA-Public Use
  Company Number: GB-MYLANLABS-2021M1061705

PATIENT
  Age: 75 Year
  Sex: Female
  Weight: 90.26 kg

DRUGS (2)
  1. APIXABAN [Concomitant]
     Active Substance: APIXABAN
     Indication: ILL-DEFINED DISORDER
     Dosage: UNK
  2. INDAPAMIDE. [Suspect]
     Active Substance: INDAPAMIDE
     Indication: HYPERTENSION
     Dosage: 2.5 MILLIGRAM
     Route: 048
     Dates: start: 20210821, end: 20210827

REACTIONS (3)
  - Pruritus [Recovering/Resolving]
  - Gastroenteritis [Recovering/Resolving]
  - Gastric disorder [Recovering/Resolving]

NARRATIVE: CASE EVENT DATE: 20210828
